FAERS Safety Report 10472334 (Version 3)
Quarter: 2015Q3

REPORT INFORMATION
  Report Type: Report from Study
  Country: PE (occurrence: PE)
  Receive Date: 20140924
  Receipt Date: 20150901
  Transmission Date: 20151125
  Serious: Yes (Hospitalization)
  Sender: FDA-Public Use
  Company Number: PE-ROCHE-1465355

PATIENT
  Age: 6 Year
  Sex: Male

DRUGS (2)
  1. PULMOZYME [Suspect]
     Active Substance: DORNASE ALFA
     Indication: CYSTIC FIBROSIS
     Dosage: 2.5 MG/ML
     Route: 048
     Dates: start: 20140824
  2. SODIUM CHLORIDE. [Concomitant]
     Active Substance: SODIUM CHLORIDE

REACTIONS (2)
  - Pseudomonas infection [Recovering/Resolving]
  - Pseudomonas infection [Recovered/Resolved]

NARRATIVE: CASE EVENT DATE: 20140920
